FAERS Safety Report 4535393-8 (Version None)
Quarter: 2004Q4

REPORT INFORMATION
  Report Type: 
  Country: None (occurrence: None)
  Receive Date: 20041214
  Receipt Date: 20040804
  Transmission Date: 20050328
  Serious: No
  Sender: FDA-Public Use
  Company Number: USA040874538

PATIENT
  Age: 56 Year
  Sex: Male

DRUGS (5)
  1. CIALIS [Suspect]
     Indication: ERECTILE DYSFUNCTION
     Dosage: 10 MG
     Dates: start: 20040701
  2. PROCARDIA XL [Concomitant]
  3. METOPROLOL [Concomitant]
  4. ENALAPRIL [Concomitant]
  5. MINOXIDIL [Concomitant]

REACTIONS (1)
  - DRUG INEFFECTIVE [None]
